FAERS Safety Report 16689796 (Version 4)
Quarter: 2019Q3

REPORT INFORMATION
  Report Type: Report from Study
  Country: CZ (occurrence: CZ)
  Receive Date: 20190809
  Receipt Date: 20190913
  Transmission Date: 20191004
  Serious: Yes (Death, Hospitalization)
  Sender: FDA-Public Use
  Company Number: CZ-EISAI MEDICAL RESEARCH-EC-2019-060330

PATIENT
  Age: 65 Year
  Sex: Male
  Weight: 105 kg

DRUGS (18)
  1. TRAMAL [Concomitant]
     Active Substance: TRAMADOL
  2. FENTANYL. [Concomitant]
     Active Substance: FENTANYL
  3. CALCIUM PHOSPHATE AND CALCIUM CARBONATE [Concomitant]
  4. LENVATINIB [Suspect]
     Active Substance: LENVATINIB
     Indication: RENAL CELL CARCINOMA
     Route: 048
     Dates: start: 20190627, end: 20190805
  5. AMEDO [Concomitant]
  6. TOUJEO [Concomitant]
     Active Substance: INSULIN GLARGINE
  7. NIMESIL [Concomitant]
     Active Substance: NIMESULIDE
  8. EUTHYROX [Concomitant]
     Active Substance: LEVOTHYROXINE SODIUM
  9. OMEPRAZOLE. [Concomitant]
     Active Substance: OMEPRAZOLE
  10. TEZEO [Concomitant]
     Active Substance: TELMISARTAN
  11. FENOFIX [Concomitant]
  12. GODASAL [Concomitant]
     Active Substance: ASPIRIN\GLYCINE
  13. ZOMETA [Concomitant]
     Active Substance: ZOLEDRONIC ACID
  14. EVEROLIMUS. [Suspect]
     Active Substance: EVEROLIMUS
     Indication: RENAL CELL CARCINOMA
     Route: 048
     Dates: start: 20190627, end: 20190805
  15. DOPEGYT [Concomitant]
     Active Substance: METHYLDOPA
  16. FURORESE [Concomitant]
     Active Substance: FUROSEMIDE
  17. APIDRA INSULIN [Concomitant]
  18. LOPERON [Concomitant]

REACTIONS (3)
  - Peritonitis [Not Recovered/Not Resolved]
  - Multiple organ dysfunction syndrome [Not Recovered/Not Resolved]
  - Intestinal sepsis [Fatal]

NARRATIVE: CASE EVENT DATE: 20190804
